FAERS Safety Report 16277987 (Version 2)
Quarter: 2019Q3

REPORT INFORMATION
  Report Type: Spontaneous
  Country: US (occurrence: US)
  Receive Date: 20190506
  Receipt Date: 20190722
  Transmission Date: 20191004
  Serious: Yes (Other)
  Sender: FDA-Public Use
  Company Number: US-ASTRAZENECA-2018SF15184

PATIENT
  Age: 22335 Day
  Sex: Male
  Weight: 140.6 kg

DRUGS (26)
  1. NEXIUM [Suspect]
     Active Substance: ESOMEPRAZOLE MAGNESIUM
     Indication: DYSPEPSIA
     Route: 048
     Dates: start: 20160823, end: 201705
  2. ZOCOR [Concomitant]
     Active Substance: SIMVASTATIN
  3. NEXIUM [Suspect]
     Active Substance: ESOMEPRAZOLE MAGNESIUM
     Indication: DYSPEPSIA
     Route: 048
     Dates: start: 20100215, end: 20110108
  4. METOPROLOL TARTRATE. [Concomitant]
     Active Substance: METOPROLOL TARTRATE
  5. OXYCODONE ACETAMINOPHEN [Concomitant]
     Active Substance: ACETAMINOPHEN\OXYCODONE HYDROCHLORIDE
  6. ASPIRIN. [Concomitant]
     Active Substance: ASPIRIN
  7. NEXIUM [Suspect]
     Active Substance: ESOMEPRAZOLE MAGNESIUM
     Indication: DYSPEPSIA
     Route: 048
     Dates: start: 20150306, end: 201508
  8. SIMVASTATIN. [Concomitant]
     Active Substance: SIMVASTATIN
  9. CLONAZEPAM. [Concomitant]
     Active Substance: CLONAZEPAM
  10. CIPROFLOXACIN. [Concomitant]
     Active Substance: CIPROFLOXACIN
  11. AMOXICILLIN. [Concomitant]
     Active Substance: AMOXICILLIN
  12. METOPROLOL. [Concomitant]
     Active Substance: METOPROLOL
  13. JANUVIA [Concomitant]
     Active Substance: SITAGLIPTIN PHOSPHATE
  14. SPIRONOLACTONE. [Concomitant]
     Active Substance: SPIRONOLACTONE
  15. NEXIUM [Suspect]
     Active Substance: ESOMEPRAZOLE MAGNESIUM
     Indication: DYSPEPSIA
     Route: 048
     Dates: start: 2014, end: 2017
  16. PROTONIX [Suspect]
     Active Substance: PANTOPRAZOLE SODIUM
     Route: 065
  17. TORSEMIDE. [Concomitant]
     Active Substance: TORSEMIDE
  18. TIZANIDINE. [Concomitant]
     Active Substance: TIZANIDINE
  19. CARVEDILOL. [Concomitant]
     Active Substance: CARVEDILOL
  20. NEXIUM [Suspect]
     Active Substance: ESOMEPRAZOLE MAGNESIUM
     Indication: DYSPEPSIA
     Route: 048
     Dates: start: 20140620, end: 201507
  21. NEXIUM [Suspect]
     Active Substance: ESOMEPRAZOLE MAGNESIUM
     Indication: DYSPEPSIA
     Route: 048
     Dates: start: 20150819, end: 201708
  22. NOVOLOG [Concomitant]
     Active Substance: INSULIN ASPART
  23. TIZANIDINE. [Concomitant]
     Active Substance: TIZANIDINE
  24. ALLOPURINOL. [Concomitant]
     Active Substance: ALLOPURINOL
  25. NEXIUM [Suspect]
     Active Substance: ESOMEPRAZOLE MAGNESIUM
     Indication: DYSPEPSIA
     Route: 048
     Dates: start: 20170829, end: 201712
  26. TAMSULOSIN [Concomitant]
     Active Substance: TAMSULOSIN

REACTIONS (2)
  - Chronic kidney disease [Not Recovered/Not Resolved]
  - Nephrogenic anaemia [Unknown]

NARRATIVE: CASE EVENT DATE: 20140424
